FAERS Safety Report 10393393 (Version 2)
Quarter: 2014Q3

REPORT INFORMATION
  Report Type: Spontaneous
  Country: DE (occurrence: DE)
  Receive Date: 20140819
  Receipt Date: 20140819
  Transmission Date: 20150326
  Serious: Yes (Disabling)
  Sender: FDA-Public Use
  Company Number: DE-SA-2014SA054402

PATIENT
  Age: 42 Year
  Sex: Female
  Weight: 62 kg

DRUGS (2)
  1. ARAVA [Suspect]
     Active Substance: LEFLUNOMIDE
     Indication: ARTHRITIS
     Route: 048
     Dates: start: 20140415, end: 20140507
  2. MTX [Concomitant]
     Active Substance: METHOTREXATE SODIUM
     Indication: ARTHRITIS
     Route: 048
     Dates: start: 2011

REACTIONS (9)
  - Throat tightness [Unknown]
  - Oropharyngeal pain [Unknown]
  - Muscle spasms [Recovered/Resolved]
  - Pharyngeal oedema [Not Recovered/Not Resolved]
  - Respiratory disorder [Not Recovered/Not Resolved]
  - Oropharyngeal pain [Recovered/Resolved]
  - Vocal cord disorder [Recovered/Resolved]
  - Disability [Recovered/Resolved]
  - Myalgia [Recovered/Resolved]

NARRATIVE: CASE EVENT DATE: 20140415
